FAERS Safety Report 9746307 (Version 4)
Quarter: 2014Q1

REPORT INFORMATION
  Report Type: Spontaneous
  Country: JP (occurrence: JP)
  Receive Date: 20131211
  Receipt Date: 20140114
  Transmission Date: 20141002
  Serious: No
  Sender: FDA-Public Use
  Company Number: JP-PFIZER INC-2013351435

PATIENT
  Sex: Female

DRUGS (5)
  1. VFEND [Suspect]
     Indication: BRONCHOPULMONARY ASPERGILLOSIS
     Dosage: 400 MG, DAILY
     Route: 048
     Dates: end: 2013
  2. VFEND [Suspect]
     Dosage: 200 MG, DAILY
     Route: 048
     Dates: start: 2013
  3. CELECOXIB [Concomitant]
     Indication: RHEUMATIC DISORDER
     Dosage: UNK
     Route: 048
  4. RIMATIL [Concomitant]
     Indication: RHEUMATIC DISORDER
     Dosage: UNK
  5. MYSLEE [Concomitant]
     Dosage: UNK

REACTIONS (2)
  - Drug level increased [Recovered/Resolved]
  - Decreased appetite [Recovered/Resolved]
